FAERS Safety Report 20453138 (Version 2)
Quarter: 2022Q1

REPORT INFORMATION
  Report Type: Spontaneous
  Country: IT (occurrence: IT)
  Receive Date: 20220210
  Receipt Date: 20220301
  Transmission Date: 20220423
  Serious: Yes (Hospitalization)
  Sender: FDA-Public Use
  Company Number: IT-SA-SAC20220207000990

PATIENT
  Age: 55 Year
  Sex: Female

DRUGS (8)
  1. DUPIXENT [Suspect]
     Active Substance: DUPILUMAB
     Indication: Nasal polyps
     Dosage: 300 MG
     Dates: start: 20210113, end: 20220113
  2. PREDNISONE [Suspect]
     Active Substance: PREDNISONE
     Dosage: 25 MG, QD; 1 TABLET/DAY
  3. PREDNISONE [Suspect]
     Active Substance: PREDNISONE
     Dosage: 25 MG; 2 TABLETS FOR 4 DAYS
  4. PREDNISONE [Suspect]
     Active Substance: PREDNISONE
     Dosage: 25 MG; 1 TABLET FOR 7 DAYS
  5. PREDNISONE [Suspect]
     Active Substance: PREDNISONE
     Dosage: 25 MG; 1/4 TABLET EVERY 4 DAYS
  6. SULFAMETHOXAZOLE\TRIMETHOPRIM [Suspect]
     Active Substance: SULFAMETHOXAZOLE\TRIMETHOPRIM
     Dosage: UNK; 1 AMPULE IM/DAY
     Route: 030
  7. SULFAMETHOXAZOLE\TRIMETHOPRIM [Suspect]
     Active Substance: SULFAMETHOXAZOLE\TRIMETHOPRIM
     Dosage: UNK; 1 VIAL IM FOR THE FIRST 4 DAYS
     Route: 030
  8. RUPATADINE [Concomitant]
     Active Substance: RUPATADINE
     Dosage: UNK; 1 TABLET FOR 20 DAYS

REACTIONS (10)
  - Urticaria [Unknown]
  - Pyrexia [Unknown]
  - Administration site plaque [Recovered/Resolved]
  - Administration site erythema [Recovered/Resolved]
  - Administration site pruritus [Recovered/Resolved]
  - Administration site warmth [Recovered/Resolved]
  - Rash maculo-papular [Recovered/Resolved]
  - Papule [Recovered/Resolved]
  - Drug ineffective [Unknown]
  - Product use in unapproved indication [Unknown]

NARRATIVE: CASE EVENT DATE: 20220120
